FAERS Safety Report 5828785-8 (Version None)
Quarter: 2008Q3

REPORT INFORMATION
  Report Type: 
  Country: None (occurrence: None)
  Receive Date: 20080731
  Receipt Date: 20080728
  Transmission Date: 20090109
  Serious: Yes (Hospitalization)
  Sender: FDA-Public Use
  Company Number: IT-MERCK-0807ITA00032

PATIENT
  Age: 74 Year
  Sex: Female

DRUGS (3)
  1. PRIMAXIN [Suspect]
     Indication: SEPSIS
     Route: 051
     Dates: start: 20080703, end: 20080704
  2. ANTRA (OMEPRAZOLE MAGNESIUM) [Concomitant]
     Route: 065
     Dates: start: 20060101
  3. LASIX [Concomitant]
     Route: 065
     Dates: start: 20060101

REACTIONS (1)
  - EPILEPSY [None]
